FAERS Safety Report 6000189-7 (Version None)
Quarter: 2008Q4

REPORT INFORMATION
  Report Type: 
  Country: None (occurrence: None)
  Receive Date: 20081211
  Receipt Date: 20081211
  Transmission Date: 20090506
  Serious: Yes (Hospitalization)
  Sender: FDA-Public Use
  Company Number: None

PATIENT
  Age: 79 Year
  Sex: Male

DRUGS (2)
  1. NAPROXEN [Suspect]
     Indication: PAIN
     Dosage: 375 MG TID PO
     Route: 048
     Dates: start: 20080711, end: 20080804
  2. ASPIRIN [Suspect]
     Indication: CORONARY ARTERY DISEASE
     Dates: start: 19961001

REACTIONS (5)
  - BRADYCARDIA [None]
  - HAEMATOCRIT DECREASED [None]
  - HYPOTENSION [None]
  - ILL-DEFINED DISORDER [None]
  - UPPER GASTROINTESTINAL HAEMORRHAGE [None]
